FAERS Safety Report 5272614-0 (Version None)
Quarter: 2007Q1

REPORT INFORMATION
  Report Type: 
  Country: None (occurrence: None)
  Receive Date: 20070322
  Receipt Date: 20070312
  Transmission Date: 20070707
  Serious: Yes (Hospitalization)
  Sender: FDA-Public Use
  Company Number: US-ROCHE-478714

PATIENT
  Age: 50 Year
  Sex: Female

DRUGS (2)
  1. PEGASYS [Suspect]
     Route: 065
     Dates: start: 20060519, end: 20061115
  2. COPEGUS [Suspect]
     Route: 048
     Dates: start: 20060519, end: 20061115

REACTIONS (9)
  - ALOPECIA [None]
  - AMNESIA [None]
  - BLOOD PRESSURE INCREASED [None]
  - CHEST PAIN [None]
  - DRY MOUTH [None]
  - ELECTROCARDIOGRAM T WAVE INVERSION [None]
  - HYPERAMMONAEMIA [None]
  - MOUTH PLAQUE [None]
  - VENTRICULAR EXTRASYSTOLES [None]
